FAERS Safety Report 20714737 (Version 1)
Quarter: 2022Q2

REPORT INFORMATION
  Report Type: Spontaneous
  Country: US (occurrence: US)
  Receive Date: 20220415
  Receipt Date: 20220415
  Transmission Date: 20220720
  Serious: Yes (Other)
  Sender: FDA-Public Use
  Company Number: US-ALLERGAN-2134804US

PATIENT
  Age: 38 Year
  Sex: Female

DRUGS (3)
  1. LILETTA [Suspect]
     Active Substance: LEVONORGESTREL
     Indication: Contraception
     Dosage: 52 MG, SINGLE
     Route: 015
     Dates: start: 20211008, end: 20211008
  2. MICROGESTIN 24 FE [Concomitant]
     Active Substance: ETHINYL ESTRADIOL\NORETHINDRONE ACETATE
     Indication: Contraception
  3. MINERALS\VITAMINS [Concomitant]
     Active Substance: MINERALS\VITAMINS

REACTIONS (1)
  - Uterine perforation [Unknown]

NARRATIVE: CASE EVENT DATE: 20211008
